FAERS Safety Report 13334571 (Version 3)
Quarter: 2017Q2

REPORT INFORMATION
  Report Type: Report from Study
  Country: US (occurrence: US)
  Receive Date: 20170314
  Receipt Date: 20170419
  Transmission Date: 20170830
  Serious: Yes (Hospitalization)
  Sender: FDA-Public Use
  Company Number: US-PFIZER INC-2017061555

PATIENT
  Age: 72 Year
  Sex: Female

DRUGS (2)
  1. IBRANCE [Suspect]
     Active Substance: PALBOCICLIB
     Indication: BREAST CANCER
     Dosage: 75 MG, CYCLIC (ONCE DAILY FOR 21 DAYS IN A ROW, FOLLOWED BY 7 DAYS OFF)
     Route: 048
     Dates: start: 20170208, end: 20170220
  2. IBRANCE [Suspect]
     Active Substance: PALBOCICLIB
     Dosage: 75 MG, CYCLIC (ONCE DAILY FOR 21 DAYS IN A ROW, FOLLOWED BY 7 DAYS OFF EVERY 28 DAYS)
     Route: 048
     Dates: start: 20170321, end: 20170327

REACTIONS (16)
  - Tongue discolouration [Unknown]
  - Candida infection [Recovered/Resolved]
  - Condition aggravated [Unknown]
  - Haemoglobin decreased [Unknown]
  - Blood calcium increased [Unknown]
  - Red blood cell count decreased [Not Recovered/Not Resolved]
  - Asthenia [Unknown]
  - Dysphagia [Unknown]
  - Neoplasm progression [Unknown]
  - White blood cell count decreased [Unknown]
  - Memory impairment [Recovering/Resolving]
  - Nausea [Unknown]
  - Oesophageal spasm [Unknown]
  - Fatigue [Not Recovered/Not Resolved]
  - Decreased appetite [Not Recovered/Not Resolved]
  - Hepatic enzyme abnormal [Unknown]
